FAERS Safety Report 4663063-4 (Version None)
Quarter: 2005Q2

REPORT INFORMATION
  Report Type: 
  Country: None (occurrence: None)
  Receive Date: 20050506
  Receipt Date: 20050405
  Transmission Date: 20051028
  Serious: Yes (Other)
  Sender: FDA-Public Use
  Company Number: 1484

PATIENT
  Age: 30 Year
  Sex: Female

DRUGS (1)
  1. AMNESTEEM [Suspect]
     Indication: ACNE
     Dosage: 40MGQD FOR 1ST M, 40MGBID, PO
     Route: 048
     Dates: start: 20040831, end: 20050226

REACTIONS (1)
  - DRUG EXPOSURE DURING PREGNANCY [None]
